FAERS Safety Report 9477845 (Version 1)
Quarter: 2013Q3

REPORT INFORMATION
  Report Type: Spontaneous
  Country: GB (occurrence: None)
  Receive Date: 20130822
  Receipt Date: 20130822
  Transmission Date: 20140515
  Serious: Yes (Disabling, Other)
  Sender: FDA-Public Use
  Company Number: AUR-APL-2013-06816

PATIENT
  Age: 34 Year
  Sex: Male
  Weight: 69.85 kg

DRUGS (1)
  1. CIPROFLOXACIN (CIPROFLOXACIN) [Suspect]
     Indication: EPIDIDYMITIS
     Dosage: 1000MG (500MG, 2 IN 1 D) ORAL
     Route: 048
     Dates: start: 20130121, end: 20130122

REACTIONS (18)
  - Joint crepitation [None]
  - Tendonitis [None]
  - Myalgia [None]
  - Tendon pain [None]
  - Anxiety [None]
  - Insomnia [None]
  - Mucous membrane disorder [None]
  - Muscular weakness [None]
  - Disturbance in sexual arousal [None]
  - Tinnitus [None]
  - Ear pain [None]
  - Eye pain [None]
  - Abnormal sensation in eye [None]
  - Toothache [None]
  - Visual acuity reduced [None]
  - Pain [None]
  - Magnesium deficiency [None]
  - Impaired driving ability [None]
